FAERS Safety Report 8778059 (Version 2)
Quarter: 2012Q4

REPORT INFORMATION
  Report Type: 
  Country: US (occurrence: US)
  Receive Date: 20120912
  Receipt Date: 20121221
  Transmission Date: 20130627
  Serious: No
  Sender: FDA-Public Use
  Company Number: US-ASTRAZENECA-2012SE61192

PATIENT
  Age: 68 Year
  Sex: Male
  Weight: 68 kg

DRUGS (3)
  1. SYMBICORT PMDI [Suspect]
     Dosage: 80/4.5, one puff twice daily.
     Route: 055
  2. ASPIRIN [Concomitant]
  3. COLCRYS [Concomitant]
     Indication: GOUT
     Route: 048

REACTIONS (2)
  - Dyspnoea [Unknown]
  - Drug dose omission [Unknown]
